FAERS Safety Report 8467454-5 (Version None)
Quarter: 2012Q2

REPORT INFORMATION
  Report Type: 
  Country: None (occurrence: None)
  Receive Date: 20120626
  Receipt Date: 20120411
  Transmission Date: 20120825
  Serious: Yes (Other)
  Sender: FDA-Public Use
  Company Number: US-ASTRAZENECA-2012SE23523

PATIENT

DRUGS (2)
  1. VANDETANIB [Suspect]
     Indication: THYROID CANCER
     Dosage: 100-300 MG DAILY
     Route: 048
  2. BORTEZOMIB [Suspect]
     Indication: THYROID CANCER
     Dosage: 1-1.3 MG/M2
     Route: 042

REACTIONS (1)
  - THROMBOCYTOPENIA [None]
